FAERS Safety Report 18189923 (Version 2)
Quarter: 2021Q2

REPORT INFORMATION
  Report Type: Spontaneous
  Country: CA (occurrence: CA)
  Receive Date: 20200824
  Receipt Date: 20210607
  Transmission Date: 20210717
  Serious: Yes (Disabling)
  Sender: FDA-Public Use
  Company Number: CA-FERRINGPH-2020FE05526

PATIENT
  Age: 36 Year
  Sex: Female

DRUGS (1)
  1. CERVIDIL [Suspect]
     Active Substance: DINOPROSTONE
     Indication: LABOUR INDUCTION
     Dosage: 10 MG
     Route: 065
     Dates: start: 20181223, end: 20181228

REACTIONS (4)
  - Overdose [Recovered/Resolved]
  - Incorrect product administration duration [Recovered/Resolved]
  - Vulvovaginal pain [Not Recovered/Not Resolved]
  - Pain [Recovered/Resolved]

NARRATIVE: CASE EVENT DATE: 2018
